FAERS Safety Report 6750036-0 (Version None)
Quarter: 2010Q2

REPORT INFORMATION
  Report Type: 
  Country: None (occurrence: None)
  Receive Date: 20100601
  Receipt Date: 20100520
  Transmission Date: 20101027
  Serious: No
  Sender: FDA-Public Use
  Company Number: JP-PFIZER INC-2010018816

PATIENT
  Age: 74 Year
  Sex: Female

DRUGS (6)
  1. RIFABUTIN [Suspect]
     Indication: MYCOBACTERIUM AVIUM COMPLEX INFECTION
     Dosage: 150 MG, 1X/DAY
     Dates: start: 20090130, end: 20090226
  2. RIFAMPICIN [Concomitant]
     Route: 048
     Dates: end: 20090101
  3. CLARITH [Concomitant]
     Indication: MYCOBACTERIUM AVIUM COMPLEX INFECTION
     Dosage: 600 MG, 1X/DAY
  4. EBUTOL [Concomitant]
     Indication: MYCOBACTERIUM AVIUM COMPLEX INFECTION
     Dosage: 750 MG, 1X/DAY
  5. CIPROFLOXACIN HCL [Concomitant]
     Indication: MYCOBACTERIUM AVIUM COMPLEX INFECTION
     Dosage: 600 MG, 3X/DAY
     Route: 048
  6. SELBEX [Concomitant]
     Dosage: UNK
     Route: 048

REACTIONS (1)
  - DECREASED APPETITE [None]
